FAERS Safety Report 18425542 (Version 1)
Quarter: 2020Q4

REPORT INFORMATION
  Report Type: Spontaneous
  Country: US (occurrence: US)
  Receive Date: 20201026
  Receipt Date: 20201026
  Transmission Date: 20210114
  Serious: Yes (Other)
  Sender: FDA-Public Use
  Company Number: US-PFIZER INC-2020413711

PATIENT
  Age: 57 Year
  Sex: Female

DRUGS (2)
  1. IBRANCE [Suspect]
     Active Substance: PALBOCICLIB
     Dosage: 100 MG
     Dates: start: 20201023
  2. IBRANCE [Suspect]
     Active Substance: PALBOCICLIB
     Dosage: UNK

REACTIONS (10)
  - Pulmonary oedema [Unknown]
  - Diarrhoea [Unknown]
  - Vomiting [Unknown]
  - Cough [Unknown]
  - Infection [Unknown]
  - Pneumonia [Unknown]
  - Liver disorder [Unknown]
  - Pain [Unknown]
  - White blood cell count decreased [Unknown]
  - Respiratory disorder [Unknown]
